FAERS Safety Report 17781954 (Version 1)
Quarter: 2020Q2

REPORT INFORMATION
  Report Type: Spontaneous
  Country: US (occurrence: US)
  Receive Date: 20200513
  Receipt Date: 20200513
  Transmission Date: 20200714
  Serious: No
  Sender: FDA-Public Use
  Company Number: None

PATIENT
  Age: 37 Year
  Sex: Female
  Weight: 65.25 kg

DRUGS (1)
  1. MEDROXYPROGESTERONE [Suspect]
     Active Substance: MEDROXYPROGESTERONE
     Indication: HORMONAL CONTRACEPTION
     Dosage: ?          OTHER FREQUENCY:ONCE EVERY 3 MONTH;?
     Route: 030
     Dates: start: 20200224, end: 20200511

REACTIONS (2)
  - Amenorrhoea [None]
  - Galactorrhoea [None]

NARRATIVE: CASE EVENT DATE: 20200511
